FAERS Safety Report 11165383 (Version 1)
Quarter: 2015Q2

REPORT INFORMATION
  Report Type: Spontaneous
  Country: US (occurrence: US)
  Receive Date: 20150604
  Receipt Date: 20150604
  Transmission Date: 20150821
  Serious: Yes (Other)
  Sender: FDA-Public Use
  Company Number: US-AKORN PHARMACEUTICALS-2015AKN00237

PATIENT
  Sex: Male

DRUGS (1)
  1. MYORISAN [Suspect]
     Active Substance: ISOTRETINOIN
     Indication: ACNE CYSTIC
     Dosage: 40 MG, 1X/DAY
     Route: 048
     Dates: start: 20141205, end: 20150403

REACTIONS (5)
  - Abnormal behaviour [Unknown]
  - Underdose [Unknown]
  - Blood cholesterol increased [Unknown]
  - Educational problem [Unknown]
  - Mood altered [Unknown]

NARRATIVE: CASE EVENT DATE: 2015
